FAERS Safety Report 5362338-3 (Version None)
Quarter: 2007Q2

REPORT INFORMATION
  Report Type: 
  Country: None (occurrence: None)
  Receive Date: 20070619
  Receipt Date: 20070611
  Transmission Date: 20071010
  Serious: No
  Sender: FDA-Public Use
  Company Number: US-ELI_LILLY_AND_COMPANY-US200704006005

PATIENT
  Age: 48 Year
  Sex: Male

DRUGS (4)
  1. METFORMIN HCL [Concomitant]
  2. TESTOSTERONE [Concomitant]
  3. BYETTA [Suspect]
     Indication: DIABETES MELLITUS NON-INSULIN-DEPENDENT
     Dosage: 5 UG, 2/D
     Route: 058
     Dates: start: 20061201, end: 20070201
  4. BYETTA [Suspect]
     Dosage: 10 UG, 2/D
     Route: 058
     Dates: start: 20070201

REACTIONS (1)
  - NO ADVERSE DRUG EFFECT [None]
